FAERS Safety Report 9708443 (Version 3)
Quarter: 2013Q4

REPORT INFORMATION
  Report Type: Spontaneous
  Country: BR (occurrence: BR)
  Receive Date: 20131125
  Receipt Date: 20131231
  Transmission Date: 20140711
  Serious: Yes (Hospitalization)
  Sender: FDA-Public Use
  Company Number: BR-PFIZER INC-2013334394

PATIENT
  Age: 53 Year
  Sex: Male
  Weight: 104 kg

DRUGS (6)
  1. ATENOLOL [Suspect]
     Indication: CARDIAC DISORDER
     Dosage: 50 MG, DAILY
     Route: 065
     Dates: start: 2003
  2. BRILINTA [Suspect]
     Dosage: 90 MG, EVERY 12 HOURS
     Route: 048
     Dates: start: 20130806
  3. SINVASCOR [Concomitant]
     Indication: BLOOD CHOLESTEROL ABNORMAL
     Dosage: DAILY
     Route: 065
     Dates: start: 2003
  4. MAREVAN [Concomitant]
     Indication: CARDIAC DISORDER
     Dosage: DAILY
     Route: 065
     Dates: start: 2003, end: 201311
  5. ASA [Concomitant]
     Indication: CARDIAC DISORDER
     Dosage: DAILY
     Route: 065
     Dates: start: 2003
  6. FOLIN [Concomitant]
     Indication: PHYSICAL EXAMINATION ABNORMAL
     Dosage: UNK
     Route: 065
     Dates: start: 2011

REACTIONS (2)
  - Device occlusion [Recovered/Resolved]
  - Investigation abnormal [Unknown]
